FAERS Safety Report 6645721-5 (Version None)
Quarter: 2010Q1

REPORT INFORMATION
  Report Type: 
  Country: None (occurrence: None)
  Receive Date: 20100323
  Receipt Date: 20100315
  Transmission Date: 20100710
  Serious: Yes (Hospitalization)
  Sender: FDA-Public Use
  Company Number: FR-ASTRAZENECA-2010SE11955

PATIENT
  Age: 25504 Day
  Sex: Female

DRUGS (6)
  1. ARIMIDEX [Suspect]
     Indication: BREAST CANCER
     Route: 048
     Dates: end: 20100123
  2. COAPROVEL [Suspect]
     Route: 048
     Dates: end: 20100123
  3. ZANIDIP [Suspect]
     Route: 048
     Dates: end: 20100124
  4. CACIT VITAMINE D3 [Suspect]
     Route: 048
     Dates: end: 20100124
  5. LYRICA [Suspect]
     Route: 048
     Dates: end: 20100124
  6. ACTONEL [Suspect]
     Route: 048
     Dates: end: 20100123

REACTIONS (2)
  - BONE MARROW FAILURE [None]
  - PANCYTOPENIA [None]
